FAERS Safety Report 5920967-X (Version None)
Quarter: 2008Q4

REPORT INFORMATION
  Report Type: 
  Country: None (occurrence: None)
  Receive Date: 20081016
  Receipt Date: 20081007
  Transmission Date: 20090506
  Serious: Yes (Other)
  Sender: FDA-Public Use
  Company Number: DE-WYE-H06363808

PATIENT
  Sex: Female

DRUGS (1)
  1. CORDAREX [Suspect]
     Dosage: UNSPECIFIED
     Route: 042
     Dates: start: 20081006

REACTIONS (4)
  - INCORRECT ROUTE OF DRUG ADMINISTRATION [None]
  - INJECTION SITE ERYTHEMA [None]
  - INJECTION SITE NECROSIS [None]
  - INJECTION SITE VESICLES [None]
